FAERS Safety Report 11647793 (Version 1)
Quarter: 2015Q4

REPORT INFORMATION
  Report Type: Spontaneous
  Country: US (occurrence: None)
  Receive Date: 20151020
  Receipt Date: 20151020
  Transmission Date: 20160304
  Serious: Yes (Other)
  Sender: FDA-Public Use
  Company Number: None

PATIENT
  Age: 56 Year
  Sex: Male
  Weight: 140.62 kg

DRUGS (19)
  1. GLUCOPHAGE [Concomitant]
     Active Substance: METFORMIN HYDROCHLORIDE
  2. CELEXA [Concomitant]
     Active Substance: CITALOPRAM HYDROBROMIDE
  3. LASIX [Concomitant]
     Active Substance: FUROSEMIDE
  4. GLUCOTROL [Concomitant]
     Active Substance: GLIPIZIDE
  5. MULTIVITAMIN (THERAM) [Concomitant]
  6. LANTUS [Concomitant]
     Active Substance: INSULIN GLARGINE
  7. PLAVIX [Concomitant]
     Active Substance: CLOPIDOGREL BISULFATE
  8. ULTRAM [Concomitant]
     Active Substance: TRAMADOL HYDROCHLORIDE
  9. WELLBUTRIN XL [Concomitant]
     Active Substance: BUPROPION HYDROCHLORIDE
  10. NORVASC [Concomitant]
     Active Substance: AMLODIPINE BESYLATE
  11. PRINIVIL ZESTRIL [Concomitant]
  12. NITROSTAT [Concomitant]
     Active Substance: NITROGLYCERIN
  13. CRESTOR [Concomitant]
     Active Substance: ROSUVASTATIN CALCIUM
  14. ZETIA [Concomitant]
     Active Substance: EZETIMIBE
  15. VICTOZA [Suspect]
     Active Substance: LIRAGLUTIDE
     Indication: TYPE 2 DIABETES MELLITUS
     Dosage: 1.2MG SUBQ 1 PER DAY ONCE DAILY GIVEN INTO/UNDER THE SKIN
     Route: 058
  16. GOLYTELYCOLYTE [Concomitant]
  17. COREG [Concomitant]
     Active Substance: CARVEDILOL
  18. ASPIRIN. [Concomitant]
     Active Substance: ASPIRIN
  19. IMDUR [Concomitant]
     Active Substance: ISOSORBIDE MONONITRATE

REACTIONS (2)
  - Hypersensitivity [None]
  - Pain [None]

NARRATIVE: CASE EVENT DATE: 20150120
